FAERS Safety Report 6611594-X (Version None)
Quarter: 2010Q1

REPORT INFORMATION
  Report Type: 
  Country: None (occurrence: None)
  Receive Date: 20100303
  Receipt Date: 20100224
  Transmission Date: 20100710
  Serious: Yes (Other)
  Sender: FDA-Public Use
  Company Number: US-RB-003405-10

PATIENT
  Sex: Male

DRUGS (2)
  1. SUBOXONE [Suspect]
     Indication: DRUG DEPENDENCE
     Route: 060
  2. ABILIFY [Suspect]
     Indication: DEPRESSION
     Dosage: DOSING DETAILS UNKNOWN
     Route: 065
     Dates: start: 20090101, end: 20090101

REACTIONS (1)
  - HALLUCINATION [None]
